FAERS Safety Report 10891318 (Version 1)
Quarter: 2015Q1

REPORT INFORMATION
  Report Type: Spontaneous
  Country: AR (occurrence: AR)
  Receive Date: 20150306
  Receipt Date: 20150306
  Transmission Date: 20150721
  Serious: Yes (Other)
  Sender: FDA-Public Use
  Company Number: AR-AMGEN-ARGSP2015021044

PATIENT
  Age: 76 Year
  Sex: Female

DRUGS (1)
  1. ENBREL [Suspect]
     Active Substance: ETANERCEPT
     Indication: RHEUMATOID ARTHRITIS
     Dosage: 50 MG, WEEKLY
     Route: 065
     Dates: start: 20110513

REACTIONS (6)
  - Mobility decreased [Unknown]
  - Confusional state [Unknown]
  - Arthropathy [Unknown]
  - Pain [Unknown]
  - Thrombosis [Unknown]
  - Nervousness [Unknown]

NARRATIVE: CASE EVENT DATE: 20150225
